FAERS Safety Report 5173834-6 (Version None)
Quarter: 2006Q4

REPORT INFORMATION
  Report Type: 
  Country: None (occurrence: None)
  Receive Date: 20061214
  Receipt Date: 20061212
  Transmission Date: 20070319
  Serious: Yes (Hospitalization)
  Sender: FDA-Public Use
  Company Number: FR-GLAXOSMITHKLINE-B0450193A

PATIENT
  Age: 60 Year
  Sex: Male
  Weight: 95 kg

DRUGS (1)
  1. AUGMENTIN '125' [Suspect]
     Route: 042
     Dates: start: 20061121, end: 20061121

REACTIONS (14)
  - ANGIONEUROTIC OEDEMA [None]
  - CHILLS [None]
  - DERMATITIS EXFOLIATIVE [None]
  - DRY SKIN [None]
  - DYSPNOEA AT REST [None]
  - EYE DISORDER [None]
  - GENERALISED ERYTHEMA [None]
  - HYPERSENSITIVITY [None]
  - PAINFUL RESPIRATION [None]
  - PRURITUS [None]
  - RALES [None]
  - RESPIRATION ABNORMAL [None]
  - SKIN EXFOLIATION [None]
  - TREMOR [None]
